FAERS Safety Report 9011324 (Version 1)
Quarter: 2013Q1

REPORT INFORMATION
  Report Type: Spontaneous
  Country: US (occurrence: US)
  Receive Date: 20130108
  Receipt Date: 20130108
  Transmission Date: 20140127
  Serious: Yes (Other)
  Sender: FDA-Public Use
  Company Number: US-JNJFOC-20130102400

PATIENT
  Age: 68 Year
  Sex: Female
  Weight: 58.97 kg

DRUGS (3)
  1. SANDOZ FENTANYL TRANSDERMAL SYSTEM [Suspect]
     Indication: NEOPLASM MALIGNANT
     Dosage: 100 UG/HR + 12.5 UG/HR
     Route: 062
     Dates: start: 201212
  2. SANDOZ FENTANYL TRANSDERMAL SYSTEM [Suspect]
     Indication: NEOPLASM MALIGNANT
     Route: 062
     Dates: start: 2012, end: 201212
  3. UNKNOWN MEDICATION [Concomitant]
     Indication: HYPERTENSION
     Route: 048
     Dates: start: 2000

REACTIONS (3)
  - Cancer pain [Not Recovered/Not Resolved]
  - Drug administration error [Not Recovered/Not Resolved]
  - Drug ineffective [Not Recovered/Not Resolved]
